FAERS Safety Report 26122085 (Version 1)
Quarter: 2025Q4

REPORT INFORMATION
  Report Type: Spontaneous
  Country: CN (occurrence: CN)
  Receive Date: 20251204
  Receipt Date: 20251204
  Transmission Date: 20260118
  Serious: Yes (Other)
  Sender: BAYER HEALTHCARE PHARMACEUTICALS INC.
  Company Number: CN-BAYER-2025A159214

PATIENT
  Age: 44 Year
  Sex: Male

DRUGS (2)
  1. ULTRAVIST [Suspect]
     Active Substance: IOPROMIDE
     Indication: Aortogram
     Dosage: 76.89 G, ONCE
     Route: 013
     Dates: start: 20251111, end: 20251111
  2. ULTRAVIST [Suspect]
     Active Substance: IOPROMIDE
     Indication: Acute myocardial infarction

REACTIONS (2)
  - Reduced facial expression [Recovering/Resolving]
  - Pruritus [Recovering/Resolving]

NARRATIVE: CASE EVENT DATE: 20251111
